FAERS Safety Report 12982370 (Version 2)
Quarter: 2016Q4

REPORT INFORMATION
  Report Type: Report from Study
  Country: BR (occurrence: BR)
  Receive Date: 20161129
  Receipt Date: 20161226
  Transmission Date: 20170207
  Serious: Yes (Other)
  Sender: FDA-Public Use
  Company Number: PHHY2016BR162914

PATIENT
  Age: 91 Year
  Sex: Female
  Weight: 49 kg

DRUGS (1)
  1. EXELON PATCH [Suspect]
     Active Substance: RIVASTIGMINE
     Indication: DEMENTIA ALZHEIMER^S TYPE
     Dosage: 9.5 MG  PATCH 10 (CM2), QD
     Route: 062
     Dates: start: 2009

REACTIONS (4)
  - Memory impairment [Unknown]
  - Malaise [Unknown]
  - Cerebrovascular accident [Unknown]
  - Central nervous system lesion [Unknown]

NARRATIVE: CASE EVENT DATE: 20151205
